FAERS Safety Report 21985247 (Version 1)
Quarter: 2023Q1

REPORT INFORMATION
  Report Type: Spontaneous
  Country: US (occurrence: US)
  Receive Date: 20230213
  Receipt Date: 20230213
  Transmission Date: 20230417
  Serious: No
  Sender: FDA-Public Use
  Company Number: US-009507513-2301USA008543

PATIENT
  Sex: Female
  Weight: 82.993 kg

DRUGS (1)
  1. EMEND [Suspect]
     Active Substance: APREPITANT
     Route: 048

REACTIONS (1)
  - Drug hypersensitivity [Unknown]
